FAERS Safety Report 20647843 (Version 1)
Quarter: 2022Q1

REPORT INFORMATION
  Report Type: Spontaneous
  Country: JP (occurrence: JP)
  Receive Date: 20220329
  Receipt Date: 20220329
  Transmission Date: 20220423
  Serious: Yes (Other)
  Sender: FDA-Public Use
  Company Number: JP-JNJFOC-20220356430

PATIENT
  Age: 42 Year
  Sex: Female

DRUGS (2)
  1. TRAMCET [Suspect]
     Active Substance: ACETAMINOPHEN\TRAMADOL
     Indication: Pain
     Dosage: DOSE UNKNOWN
     Route: 048
  2. TREPROSTINIL [Suspect]
     Active Substance: TREPROSTINIL
     Indication: Product used for unknown indication
     Dosage: DOSE UNKNOWN
     Route: 065

REACTIONS (14)
  - Bradycardia [Unknown]
  - Infusion site pain [Unknown]
  - Infusion site erythema [Unknown]
  - Infusion site swelling [Unknown]
  - Hot flush [Unknown]
  - Headache [Unknown]
  - Skin exfoliation [Unknown]
  - Urticaria [Unknown]
  - Infusion site discharge [Unknown]
  - Dermatitis contact [Unknown]
  - Infusion site erosion [Unknown]
  - Infusion site induration [Unknown]
  - Nausea [Unknown]
  - Infusion site discolouration [Unknown]
